FAERS Safety Report 6666912-3 (Version None)
Quarter: 2010Q2

REPORT INFORMATION
  Report Type: 
  Country: None (occurrence: None)
  Receive Date: 20100402
  Receipt Date: 20100402
  Transmission Date: 20101027
  Serious: Yes (Death, Hospitalization)
  Sender: FDA-Public Use
  Company Number: None

PATIENT
  Sex: Female
  Weight: 102 kg

DRUGS (2)
  1. CISPLATIN [Suspect]
     Dosage: 164 MG
     Dates: end: 20091103
  2. ETOPOSIDE [Suspect]
     Dosage: 615 MG
     Dates: end: 20091105

REACTIONS (10)
  - ATRIAL TACHYCARDIA [None]
  - BLOOD PRESSURE DIASTOLIC DECREASED [None]
  - DIARRHOEA [None]
  - HYPOKALAEMIA [None]
  - HYPOMAGNESAEMIA [None]
  - NEUTROPENIA [None]
  - OEDEMA [None]
  - PULMONARY OEDEMA [None]
  - PULSE ABSENT [None]
  - RENAL IMPAIRMENT [None]
